FAERS Safety Report 5716179-5 (Version None)
Quarter: 2008Q2

REPORT INFORMATION
  Report Type: 
  Country: None (occurrence: None)
  Receive Date: 20080424
  Receipt Date: 20080416
  Transmission Date: 20081010
  Serious: Yes (Other)
  Sender: FDA-Public Use
  Company Number: US-JNJFOC-20080404437

PATIENT
  Age: 59 Year
  Sex: Female

DRUGS (3)
  1. DOXORUBICIN HYDROCHLORIDE [Suspect]
     Indication: FALLOPIAN TUBE CANCER
     Route: 042
  2. GEMCITABINE [Suspect]
     Indication: FALLOPIAN TUBE CANCER
     Route: 065
  3. CISPLATIN [Suspect]
     Indication: FALLOPIAN TUBE CANCER
     Route: 065

REACTIONS (2)
  - ABDOMINAL PAIN [None]
  - ASCITES [None]
